FAERS Safety Report 5644448-6 (Version None)
Quarter: 2008Q1

REPORT INFORMATION
  Report Type: 
  Country: None (occurrence: None)
  Receive Date: 20080229
  Receipt Date: 20080220
  Transmission Date: 20080703
  Serious: Yes (Other)
  Sender: FDA-Public Use
  Company Number: GB-AMGEN-US266542

PATIENT
  Sex: Female
  Weight: 41.5 kg

DRUGS (4)
  1. ENBREL [Suspect]
     Indication: POLYARTHRITIS
     Route: 058
     Dates: start: 20050801
  2. ENBREL [Suspect]
     Indication: JUVENILE ARTHRITIS
  3. NAPROXEN [Concomitant]
     Route: 065
     Dates: start: 20031001
  4. LEVOTHYROXINE SODIUM [Concomitant]
     Route: 065
     Dates: start: 20050501

REACTIONS (4)
  - DEPRESSED MOOD [None]
  - FATIGUE [None]
  - HEADACHE [None]
  - NAUSEA [None]
